FAERS Safety Report 7407206-8 (Version None)
Quarter: 2011Q2

REPORT INFORMATION
  Report Type: 
  Country: None (occurrence: None)
  Receive Date: 20110411
  Receipt Date: 20110316
  Transmission Date: 20111010
  Serious: No
  Sender: FDA-Public Use
  Company Number: US-B.I. PHARMACEUTICALS,INC./RIDGEFIELD-2011-BP-08564BP

PATIENT
  Sex: Female

DRUGS (3)
  1. CALTRATE [Concomitant]
     Indication: PROPHYLAXIS
     Route: 048
  2. METOPROLOL TARTRATE [Concomitant]
     Indication: HYPERTENSION
     Dosage: 25 MG
     Route: 048
  3. PRADAXA [Suspect]
     Indication: ATRIAL FIBRILLATION
     Dosage: 300 MG
     Route: 048
     Dates: start: 20110201

REACTIONS (2)
  - CHEST PAIN [None]
  - THROAT IRRITATION [None]
